FAERS Safety Report 20681607 (Version 1)
Quarter: 2022Q2

REPORT INFORMATION
  Report Type: Spontaneous
  Country: CN (occurrence: CN)
  Receive Date: 20220406
  Receipt Date: 20220406
  Transmission Date: 20220720
  Serious: Yes (Hospitalization)
  Sender: FDA-Public Use
  Company Number: CN-STRIDES ARCOLAB LIMITED-2022SP003552

PATIENT
  Age: 7 Year
  Sex: Female

DRUGS (23)
  1. ETOPOSIDE [Suspect]
     Active Substance: ETOPOSIDE
     Indication: Chronic active Epstein-Barr virus infection
     Dosage: 100 MILLIGRAM/SQ. METER ON THE FIRST DAY OF EACH WEEKS
     Route: 065
  2. ETOPOSIDE [Suspect]
     Active Substance: ETOPOSIDE
     Dosage: 150 MILLIGRAM/SQ. METER ON DAY 1
     Route: 065
  3. ETOPOSIDE [Suspect]
     Active Substance: ETOPOSIDE
     Dosage: 300 MILLIGRAM/SQ. METER (VP16) PER DAY FOR 3 DAYS
     Route: 065
  4. MYCOPHENOLATE MOFETIL [Suspect]
     Active Substance: MYCOPHENOLATE MOFETIL
     Indication: Prophylaxis against graft versus host disease
     Dosage: UNK
     Route: 065
  5. METHOTREXATE [Suspect]
     Active Substance: METHOTREXATE
     Indication: Prophylaxis against graft versus host disease
     Dosage: UNK
     Route: 065
  6. CYCLOSPORINE [Suspect]
     Active Substance: CYCLOSPORINE
     Indication: Prophylaxis against graft versus host disease
     Dosage: UNK
     Route: 065
  7. PEG/L-ASPARAGINASE [Suspect]
     Active Substance: PEGASPARGASE
     Indication: Chronic active Epstein-Barr virus infection
     Dosage: 2000 U/ME2 ON DAY 5
     Route: 065
  8. DOXORUBICIN HYDROCHLORIDE [Suspect]
     Active Substance: DOXORUBICIN HYDROCHLORIDE
     Indication: Chronic active Epstein-Barr virus infection
     Dosage: 25 MILLIGRAM/SQ. METER ON DAY 1
     Route: 065
  9. METHYLPREDNISOLONE [Suspect]
     Active Substance: METHYLPREDNISOLONE
     Indication: Chronic active Epstein-Barr virus infection
     Dosage: 15 MILLIGRAM/KILOGRAM PER DAY ON DAYS 1-3
     Route: 065
  10. METHYLPREDNISOLONE [Suspect]
     Active Substance: METHYLPREDNISOLONE
     Dosage: 2 MILLIGRAM/KILOGRAM PER DAY ON DAYS 4-7
     Route: 065
  11. METHYLPREDNISOLONE [Suspect]
     Active Substance: METHYLPREDNISOLONE
     Dosage: 1 MILLIGRAM/KILOGRAM PER DAY ON DAYS 8-14 FOLLOWED BY GRADUAL TAPERING THE FOLLOWING WEEK
     Route: 065
  12. METHYLPREDNISOLONE [Suspect]
     Active Substance: METHYLPREDNISOLONE
     Dosage: UNK, TAPERING DOSE THE FOLLOWING WEEK
     Route: 065
  13. METHYLPREDNISOLONE [Suspect]
     Active Substance: METHYLPREDNISOLONE
     Dosage: 2.5 MILLIGRAM/KILOGRAM, BID, 0.5 DAY 8 TIMES BEGIN AT NIGHT ON DAY 1
     Route: 065
  14. METHYLPREDNISOLONE [Suspect]
     Active Substance: METHYLPREDNISOLONE
     Dosage: 2 MILLIGRAM/KILOGRAM PER DAY ON DAYS 6-12
     Route: 065
  15. METHYLPREDNISOLONE [Suspect]
     Active Substance: METHYLPREDNISOLONE
     Dosage: 1 MILLIGRAM/KILOGRAM PER DAY ON DAYS 13-15
     Route: 065
  16. METHYLPREDNISOLONE [Suspect]
     Active Substance: METHYLPREDNISOLONE
     Dosage: 0.5 MILLIGRAM/KILOGRAM PER DAY ON DAYS 16-18
     Route: 065
  17. METHYLPREDNISOLONE [Suspect]
     Active Substance: METHYLPREDNISOLONE
     Dosage: 0.25 MILLIGRAM/KILOGRAM PER DAY ON DAYS 19-21
     Route: 065
  18. FLUDARABINE [Suspect]
     Active Substance: FLUDARABINE PHOSPHATE
     Indication: Chronic active Epstein-Barr virus infection
     Dosage: 30 MILLIGRAM/SQ. METER PER DAY FOR 5 DAYS
     Route: 065
  19. CYCLOPHOSPHAMIDE [Suspect]
     Active Substance: CYCLOPHOSPHAMIDE
     Indication: Chronic active Epstein-Barr virus infection
     Dosage: 30 MILLIGRAM/KILOGRAM PER DAY FOR 4 DAYS
     Route: 065
  20. THYMOCYTE IMMUNE GLOBULIN NOS [Suspect]
     Active Substance: THYMOCYTE IMMUNE GLOBULIN NOS
     Indication: Chronic active Epstein-Barr virus infection
     Dosage: 2.5 MILLIGRAM/KILOGRAM FOR 4 DAYS
     Route: 065
  21. BUSULFAN [Suspect]
     Active Substance: BUSULFAN
     Indication: Chronic active Epstein-Barr virus infection
     Dosage: 0.8-1.2 MG/KG FOR 4 DAYS AND THE N 3 DAYS
     Route: 065
  22. CYTARABINE [Suspect]
     Active Substance: CYTARABINE
     Indication: Chronic active Epstein-Barr virus infection
     Dosage: 1.5 MILLIGRAM/SQ. METER, BID, 8 TIMES BEGIN AT NIGHT ON DAY 1
     Route: 065
  23. ASPARAGINASE [Suspect]
     Active Substance: ASPARAGINASE
     Indication: Chronic active Epstein-Barr virus infection
     Dosage: 6000 U/M2 ONCE EVERY OTHER DAY FOR 5 TIMES BEGIN ON DAY 5
     Route: 065

REACTIONS (2)
  - Thrombotic microangiopathy [Unknown]
  - Off label use [Unknown]
